FAERS Safety Report 15219416 (Version 2)
Quarter: 2018Q3

REPORT INFORMATION
  Report Type: Report from Study
  Country: US (occurrence: US)
  Receive Date: 20180731
  Receipt Date: 20180830
  Transmission Date: 20181010
  Serious: No
  Sender: FDA-Public Use
  Company Number: PHEH2018US031170

PATIENT
  Sex: Male

DRUGS (2)
  1. ILARIS [Suspect]
     Active Substance: CANAKINUMAB
     Indication: STILL^S DISEASE
     Dosage: 300 MG, EVERY 21 DAYS
     Route: 058
     Dates: start: 20161018
  2. CELEBREX [Concomitant]
     Active Substance: CELECOXIB
     Indication: STILL^S DISEASE
     Dosage: 200 MG, BID
     Route: 048
     Dates: start: 20170731

REACTIONS (2)
  - Impaired healing [Unknown]
  - Skin atrophy [Unknown]
